FAERS Safety Report 9899992 (Version 1)
Quarter: 2014Q1

REPORT INFORMATION
  Report Type: Not Available
  Country: US (occurrence: US)
  Receive Date: 20140214
  Receipt Date: 20140214
  Transmission Date: 20141002
  Serious: No
  Sender: FDA-Public Use
  Company Number: US-VIVUS-2013V1000867

PATIENT
  Age: 63 Year
  Sex: Female
  Weight: 79 kg

DRUGS (8)
  1. QSYMIA 3.75MG/23MG [Suspect]
     Indication: WEIGHT DECREASED
     Route: 048
     Dates: start: 20131205
  2. ZOLOFT [Concomitant]
     Indication: HOT FLUSH
     Dosage: STARTED 2 YEARS AGO
     Route: 048
     Dates: start: 2011
  3. CLARITIN [Concomitant]
     Indication: SEASONAL ALLERGY
     Dosage: STARTED 2 YEARS AGO
     Route: 048
     Dates: start: 2011
  4. ALDORIL [Concomitant]
     Indication: HYPERTENSION
     Dosage: STARTED 40 YEARS AGO
     Route: 048
     Dates: start: 1973
  5. PRILOSEC [Concomitant]
     Indication: GASTROOESOPHAGEAL REFLUX DISEASE
     Dosage: STARTED 5 YEARS AGO
     Route: 048
     Dates: start: 2008
  6. GLUCOTROL [Concomitant]
     Indication: DIABETES MELLITUS
     Dosage: STARTED 2 YEARS AGO
     Route: 048
     Dates: start: 2011
  7. METFORMIN [Concomitant]
     Indication: DIABETES MELLITUS
     Dosage: STARTED 7 YEARS AGO
     Route: 048
     Dates: start: 2006
  8. LISINOPRIL [Concomitant]
     Indication: HYPERTENSION
     Dosage: STARTED 7 YEARS AGO
     Route: 048
     Dates: start: 2006

REACTIONS (2)
  - Blood glucose increased [Not Recovered/Not Resolved]
  - Gastrooesophageal reflux disease [Not Recovered/Not Resolved]
